FAERS Safety Report 21230637 (Version 2)
Quarter: 2022Q3

REPORT INFORMATION
  Report Type: Report from Study
  Country: US (occurrence: US)
  Receive Date: 20220818
  Receipt Date: 20220907
  Transmission Date: 20221027
  Serious: Yes (Other)
  Sender: FDA-Public Use
  Company Number: US-BRISTOL-MYERS SQUIBB COMPANY-2022-064375

PATIENT
  Age: 63 Year
  Sex: Female
  Weight: 69.39 kg

DRUGS (2)
  1. POMALYST [Suspect]
     Active Substance: POMALIDOMIDE
     Indication: Osteoarthritis
     Route: 048
     Dates: start: 20220506
  2. POMALYST [Suspect]
     Active Substance: POMALIDOMIDE
     Indication: Myelofibrosis
     Route: 048

REACTIONS (4)
  - Oropharyngeal pain [Unknown]
  - Gout [Unknown]
  - Joint swelling [Unknown]
  - Intentional product use issue [Unknown]
